FAERS Safety Report 11838817 (Version 2)
Quarter: 2018Q4

REPORT INFORMATION
  Report Type: Spontaneous
  Country: JP (occurrence: JP)
  Receive Date: 20151215
  Receipt Date: 20181213
  Transmission Date: 20190204
  Serious: Yes (Hospitalization, Other)
  Sender: FDA-Public Use
  Company Number: JP-MACLEODS PHARMACEUTICALS US LTD-MAC2015002233

PATIENT

DRUGS (3)
  1. YOKUKANSAN [Concomitant]
     Active Substance: HERBALS
     Indication: NEUROPSYCHIATRIC SYMPTOMS
     Dosage: UNK
     Route: 065
  2. OLANZAPINE. [Suspect]
     Active Substance: OLANZAPINE
     Indication: NEUROPSYCHIATRIC SYMPTOMS
     Dosage: UNK
     Route: 065
  3. VALPROIC ACID. [Concomitant]
     Active Substance: VALPROIC ACID
     Indication: NEUROPSYCHIATRIC SYMPTOMS
     Dosage: UNK
     Route: 065

REACTIONS (4)
  - Akinesia [Recovered/Resolved]
  - Decubitus ulcer [Recovered/Resolved]
  - Skin ulcer [Recovered/Resolved]
  - Mobility decreased [Recovered/Resolved]
